FAERS Safety Report 21302046 (Version 1)
Quarter: 2022Q3

REPORT INFORMATION
  Report Type: Spontaneous
  Country: FR (occurrence: FR)
  Receive Date: 20220907
  Receipt Date: 20220907
  Transmission Date: 20221027
  Serious: Yes (Hospitalization)
  Sender: FDA-Public Use
  Company Number: None

PATIENT
  Age: 74 Year
  Sex: Male

DRUGS (5)
  1. CLONAZEPAM [Suspect]
     Active Substance: CLONAZEPAM
     Indication: Pain
     Dosage: 3 DF,DAILY(3 GOUTTES/J)
     Route: 048
     Dates: start: 2001
  2. ZOLPIDEM [Suspect]
     Active Substance: ZOLPIDEM TARTRATE
     Indication: Insomnia
     Dosage: 1 DF, DAILY
     Route: 048
     Dates: start: 2011
  3. VAXZEVRIA [Suspect]
     Active Substance: AZD-1222
     Indication: COVID-19 immunisation
     Dosage: VAXZEVRIA D1 (LOT ABW0018) IN THE LEFT DELTOID
     Route: 030
     Dates: start: 20210402, end: 20210402
  4. VAXZEVRIA [Suspect]
     Active Substance: AZD-1222
     Indication: COVID-19 immunisation
     Dosage: 1 DF(D2, SINGLE 1 TOTAL FOR COVID-19 VACCINATION)?D2 OF VAXZEVRIA VACCINE (LOT ABX5105) IN THE R...
     Route: 030
     Dates: start: 20210607, end: 20210607
  5. ROSUVASTATIN [Suspect]
     Active Substance: ROSUVASTATIN
     Indication: Dyslipidaemia
     Dosage: 1 DF,(1CP 1JOUR/2, ONCE IN 2 DAYS )
     Route: 048
     Dates: start: 2011

REACTIONS (2)
  - Thrombocytopenia [Not Recovered/Not Resolved]
  - Product use in unapproved indication [Unknown]

NARRATIVE: CASE EVENT DATE: 20211012
